FAERS Safety Report 11088037 (Version 1)
Quarter: 2015Q2

REPORT INFORMATION
  Report Type: Spontaneous
  Country: US (occurrence: None)
  Receive Date: 20150430
  Receipt Date: 20150430
  Transmission Date: 20150821
  Serious: Yes (Life-Threatening)
  Sender: FDA-Public Use
  Company Number: 54973 AE # 1606

PATIENT
  Age: 3 Month
  Sex: Male

DRUGS (3)
  1. HYLAND^S BABY TEETHING GEL [Suspect]
     Active Substance: HOMEOPATHICS
     Indication: PAIN
     Dosage: APPLIED TO GUMSBIDX1DAY
  2. BABY TEETHING [Suspect]
     Active Substance: ARABICA COFFEE BEAN\ATROPA BELLADONNA\CALCIUM PHOSPHATE\CHAMOMILE
     Indication: TEETHING
     Dosage: 2 TABS, Q1HR, 2 DOSES?
  3. HYLAND^S BABY TEETHING GEL [Suspect]
     Active Substance: HOMEOPATHICS
     Indication: ERYTHEMA
     Dosage: APPLIED TO GUMSBIDX1DAY

REACTIONS (4)
  - Dyspnoea [None]
  - Choking [None]
  - Dysphagia [None]
  - Saliva altered [None]

NARRATIVE: CASE EVENT DATE: 20150411
